FAERS Safety Report 23458640 (Version 1)
Quarter: 2024Q1

REPORT INFORMATION
  Report Type: Report from Study
  Country: IT (occurrence: IT)
  Receive Date: 20240130
  Receipt Date: 20240130
  Transmission Date: 20240410
  Serious: Yes (Disabling)
  Sender: FDA-Public Use
  Company Number: IT-ABBVIE-5607365

PATIENT
  Age: 70 Year
  Sex: Male

DRUGS (2)
  1. CARBIDOPA\LEVODOPA [Suspect]
     Active Substance: CARBIDOPA\LEVODOPA
     Indication: Parkinson^s disease
     Dosage: TOTAL DAILY DOSE (MG) : 2034 PUMP SETTING: MD: 4,5+3 CR: 4,3 (14H), 3,3 (10H) ED: 2?STOP DATE TEX...
     Route: 050
     Dates: start: 20210721
  2. CARBIDOPA\LEVODOPA [Suspect]
     Active Substance: CARBIDOPA\LEVODOPA

REACTIONS (2)
  - Enteral nutrition [Not Recovered/Not Resolved]
  - Dysphagia [Not Recovered/Not Resolved]

NARRATIVE: CASE EVENT DATE: 20240101
